FAERS Safety Report 5795044-1 (Version None)
Quarter: 2008Q2

REPORT INFORMATION
  Report Type: 
  Country: None (occurrence: None)
  Receive Date: 20080626
  Receipt Date: 20080616
  Transmission Date: 20081010
  Serious: Yes (Hospitalization)
  Sender: FDA-Public Use
  Company Number: 2008SS000023

PATIENT
  Age: 77 Year
  Sex: Male

DRUGS (2)
  1. BOTULINUM TOXIN TYPE B (BOTILINUM TOXIN TYPE B) [Suspect]
     Indication: ANAL FISSURE
     Dosage: IM
     Route: 030
  2. BOTULINUM TOXIN TYPE B (BOTILINUM TOXIN TYPE B) [Suspect]
     Indication: OFF LABEL USE
     Dosage: IM
     Route: 030

REACTIONS (15)
  - ACQUIRED HYDROCELE [None]
  - BACTEROIDES INFECTION [None]
  - BLOOD CREATININE INCREASED [None]
  - BLOOD GLUCOSE INCREASED [None]
  - BLOOD PRESSURE DECREASED [None]
  - BLOOD UREA INCREASED [None]
  - ERYTHEMA [None]
  - GENERAL PHYSICAL HEALTH DETERIORATION [None]
  - NECROTISING FASCIITIS [None]
  - PAIN [None]
  - POST PROCEDURAL INFECTION [None]
  - POSTOPERATIVE WOUND INFECTION [None]
  - PROTHROMBIN TIME PROLONGED [None]
  - STAPHYLOCOCCAL INFECTION [None]
  - TESTICULAR SWELLING [None]
